FAERS Safety Report 9308451 (Version 1)
Quarter: 2013Q2

REPORT INFORMATION
  Report Type: Other
  Country: JP (occurrence: JP)
  Receive Date: 20130524
  Receipt Date: 20130524
  Transmission Date: 20140414
  Serious: Yes (Death, Hospitalization)
  Sender: FDA-Public Use
  Company Number: JP-BRISTOL-MYERS SQUIBB COMPANY-18939124

PATIENT
  Age: 41 Year
  Sex: Male

DRUGS (2)
  1. CISPLATIN [Suspect]
     Indication: GASTRIC CANCER
     Dosage: CHEMOTHERAPY?80MG
  2. GEMCITABINE [Suspect]

REACTIONS (3)
  - General physical health deterioration [Unknown]
  - Coronary artery thrombosis [Unknown]
  - Extremity necrosis [Unknown]
